FAERS Safety Report 25916368 (Version 2)
Quarter: 2025Q4

REPORT INFORMATION
  Report Type: Spontaneous
  Country: US (occurrence: US)
  Receive Date: 20251014
  Receipt Date: 20251209
  Transmission Date: 20260119
  Serious: No
  Sender: Kenvue
  Company Number: US-KENVUE-20251000349

PATIENT
  Age: 78 Year
  Sex: Male

DRUGS (1)
  1. TYLENOL 8 HR ARTHRITIS PAIN [Suspect]
     Active Substance: ACETAMINOPHEN
     Indication: Headache
     Dosage: 1 DOSAGE FORM, SINGLE, 1 DOSAGE FORM (ONCE ONLY)
     Route: 065
     Dates: start: 20250927

REACTIONS (4)
  - Inappropriate schedule of product administration [Unknown]
  - Incorrect dose administered [Unknown]
  - Product lot number issue [Unknown]
  - Product expiration date issue [Unknown]

NARRATIVE: CASE EVENT DATE: 20250927
